FAERS Safety Report 9641721 (Version 7)
Quarter: 2013Q4

REPORT INFORMATION
  Report Type: Spontaneous
  Country: JP (occurrence: JP)
  Receive Date: 20131023
  Receipt Date: 20131205
  Transmission Date: 20140711
  Serious: Yes (Death, Hospitalization, Other)
  Sender: FDA-Public Use
  Company Number: JP-B.I. PHARMACEUTICALS,INC./RIDGEFIELD-2013-BI-33843NB

PATIENT
  Age: 75 Year
  Sex: Female
  Weight: 40 kg

DRUGS (5)
  1. PRAZAXA [Suspect]
     Indication: ATRIAL FIBRILLATION
     Dosage: 220 MG
     Route: 048
     Dates: start: 20120411, end: 20130925
  2. HALFDIGOXIN / DIGOXIN [Concomitant]
     Indication: ATRIAL FIBRILLATION
     Dosage: 0.125 MG
     Route: 048
  3. VASOLAN / VERAPAMIL HYDROCHLORIDE [Concomitant]
     Indication: ATRIAL FIBRILLATION
     Dosage: 120 MG
     Route: 048
  4. SENNOSIDE / SENNOSIDE [Concomitant]
     Indication: CONSTIPATION
     Dosage: 24 MG
     Route: 048
  5. VOGLIBOSE OD / VOGLIBOSE [Concomitant]
     Indication: DIABETES MELLITUS
     Dosage: 0.4 MG
     Route: 048

REACTIONS (11)
  - Shock haemorrhagic [Fatal]
  - Gastrointestinal haemorrhage [Fatal]
  - Melaena [Fatal]
  - Haematemesis [Fatal]
  - Cardio-respiratory arrest [Fatal]
  - Loss of consciousness [Unknown]
  - Intestinal obstruction [Unknown]
  - Prerenal failure [Unknown]
  - Nausea [Unknown]
  - Decreased appetite [Unknown]
  - Hypophagia [Unknown]
